FAERS Safety Report 14517434 (Version 2)
Quarter: 2018Q1

REPORT INFORMATION
  Report Type: Report from Study
  Country: DE (occurrence: DE)
  Receive Date: 20180212
  Receipt Date: 20180221
  Transmission Date: 20180509
  Serious: Yes (Other)
  Sender: FDA-Public Use
  Company Number: DE-ROCHE-2071745

PATIENT

DRUGS (1)
  1. RITUXIMAB. [Suspect]
     Active Substance: RITUXIMAB
     Indication: ANTISYNTHETASE SYNDROME
     Route: 042

REACTIONS (4)
  - Intentional product use issue [Unknown]
  - Hypertensive crisis [Unknown]
  - Off label use [Unknown]
  - Flushing [Unknown]
